FAERS Safety Report 16498064 (Version 1)
Quarter: 2019Q2

REPORT INFORMATION
  Report Type: Spontaneous
  Country: NO (occurrence: NO)
  Receive Date: 20190628
  Receipt Date: 20190628
  Transmission Date: 20190711
  Serious: Yes (Disabling, Other)
  Sender: FDA-Public Use
  Company Number: NO-TEVA-2019-NO-1070486

PATIENT
  Age: 41 Year
  Sex: Male
  Weight: 100 kg

DRUGS (6)
  1. VITAMINE B9 [Concomitant]
  2. FISH OIL [Concomitant]
     Active Substance: FISH OIL
  3. VITAMINE C [Concomitant]
     Active Substance: ASCORBIC ACID
  4. DRIDASE [Suspect]
     Active Substance: OXYBUTYNIN CHLORIDE
     Indication: HYPERHIDROSIS
     Dosage: THE DOSAGE WAS WRITTEN ON KENTERA. IT SEEMS AS IF THE DOSAGE WAS MENT FOR DRIDASE.
     Route: 048
     Dates: start: 20180101, end: 20180424
  5. KENTERA [Suspect]
     Active Substance: OXYBUTYNIN
     Indication: HYPERHIDROSIS
     Route: 062
  6. SUBUTEX [Concomitant]
     Active Substance: BUPRENORPHINE HYDROCHLORIDE

REACTIONS (11)
  - Feeling cold [Unknown]
  - Head discomfort [Not Recovered/Not Resolved]
  - Dry eye [Not Recovered/Not Resolved]
  - Acute stress disorder [Unknown]
  - Dysuria [Not Recovered/Not Resolved]
  - Insomnia [Not Recovered/Not Resolved]
  - Nausea [Not Recovered/Not Resolved]
  - Dissociation [Unknown]
  - Visual impairment [Not Recovered/Not Resolved]
  - Impulsive behaviour [Unknown]
  - Memory impairment [Unknown]
